FAERS Safety Report 6747274-X (Version None)
Quarter: 2010Q2

REPORT INFORMATION
  Report Type: 
  Country: None (occurrence: None)
  Receive Date: 20100528
  Receipt Date: 20100521
  Transmission Date: 20101027
  Serious: Yes (Other)
  Sender: FDA-Public Use
  Company Number: A0845048A

PATIENT
  Sex: Female

DRUGS (8)
  1. TYKERB [Suspect]
     Dosage: 1250MG PER DAY
     Route: 048
     Dates: start: 20091221, end: 20100514
  2. XELODA [Concomitant]
     Route: 065
  3. IRON [Concomitant]
     Route: 065
  4. EFFEXOR [Concomitant]
     Route: 065
  5. DOMPERIDONE [Concomitant]
     Route: 065
  6. STOOL SOFTENER [Concomitant]
     Route: 065
  7. ATIVAN [Concomitant]
     Route: 065
  8. TYLENOL (CAPLET) [Concomitant]
     Route: 065

REACTIONS (7)
  - ABDOMINAL DISTENSION [None]
  - BREAST CANCER [None]
  - DEHYDRATION [None]
  - HEPATIC ENZYME INCREASED [None]
  - LABYRINTHITIS [None]
  - VERTIGO [None]
  - VOMITING [None]
